FAERS Safety Report 25712567 (Version 1)
Quarter: 2025Q3

REPORT INFORMATION
  Report Type: Spontaneous
  Country: KR (occurrence: KR)
  Receive Date: 20250821
  Receipt Date: 20250821
  Transmission Date: 20251021
  Serious: Yes (Death)
  Sender: ELI LILLY AND COMPANY
  Company Number: KR-ELI_LILLY_AND_COMPANY-KR202508011986

PATIENT
  Age: 75 Year
  Sex: Male

DRUGS (10)
  1. CYRAMZA [Suspect]
     Active Substance: RAMUCIRUMAB
     Indication: Product used for unknown indication
     Route: 042
     Dates: start: 20250806
  2. YUHAN DEXAMETHASONE [Concomitant]
     Indication: Product used for unknown indication
  3. MYPOL [CODEINE PHOSPHATE;IBUPROFEN;PARACETAMO [Concomitant]
     Indication: Product used for unknown indication
  4. MAGNESIUM OXIDE [Concomitant]
     Active Substance: MAGNESIUM OXIDE
     Indication: Product used for unknown indication
  5. ERDOSTEINE [Concomitant]
     Active Substance: ERDOSTEINE
     Indication: Product used for unknown indication
  6. INNO.N 0.9% SODIUM CHLORIDE [Concomitant]
     Indication: Product used for unknown indication
  7. YUHAN DEXAMETHASONE DISODIUM PHOSPHATE [Concomitant]
     Indication: Product used for unknown indication
  8. JW 5% DEXTROSE IN NORMAL SALINE [Concomitant]
     Indication: Product used for unknown indication
  9. PENIRAMIN [Concomitant]
     Indication: Product used for unknown indication
  10. DOCETAXEL [Concomitant]
     Active Substance: DOCETAXEL
     Indication: Product used for unknown indication

REACTIONS (1)
  - Death [Fatal]

NARRATIVE: CASE EVENT DATE: 20250801
